FAERS Safety Report 19481947 (Version 1)
Quarter: 2021Q2

REPORT INFORMATION
  Report Type: Spontaneous
  Country: US (occurrence: US)
  Receive Date: 20210630
  Receipt Date: 20210630
  Transmission Date: 20210717
  Serious: Yes (Disabling, Other)
  Sender: FDA-Public Use
  Company Number: None

PATIENT
  Age: 65 Year
  Sex: Female
  Weight: 50.4 kg

DRUGS (7)
  1. VITAMIN D3 [Concomitant]
     Active Substance: CHOLECALCIFEROL
  2. ALISKIRIN [Concomitant]
  3. ROSUVASTATIN. [Concomitant]
     Active Substance: ROSUVASTATIN
  4. FORTEO [Suspect]
     Active Substance: TERIPARATIDE
     Indication: OSTEOPOROSIS
     Dosage: ?          QUANTITY:1 INJECTION(S);?
     Route: 058
  5. SYNTHROID [Concomitant]
     Active Substance: LEVOTHYROXINE SODIUM
  6. VITAMIN B12 [Concomitant]
     Active Substance: CYANOCOBALAMIN
  7. INSULIN [Concomitant]
     Active Substance: INSULIN NOS

REACTIONS (4)
  - Blood cholesterol decreased [None]
  - Computerised tomogram coronary artery abnormal [None]
  - Calcinosis [None]
  - Arteriosclerosis coronary artery [None]

NARRATIVE: CASE EVENT DATE: 20210501
